FAERS Safety Report 11127632 (Version 1)
Quarter: 2015Q2

REPORT INFORMATION
  Report Type: Spontaneous
  Country: US (occurrence: None)
  Receive Date: 20150520
  Receipt Date: 20150520
  Transmission Date: 20150821
  Serious: No
  Sender: FDA-Public Use
  Company Number: None

PATIENT
  Age: 51 Year
  Sex: Male

DRUGS (17)
  1. ATENOLOL (TENORMIN) [Concomitant]
  2. INTERFERON BETA-1B (EXTAVIA) [Concomitant]
  3. FAMOTIDINE (PEPCID) [Concomitant]
  4. IBUPROFEN (MOTRIN) [Concomitant]
  5. LORAZEPAM (ATIVAN) [Concomitant]
  6. SOTALOL (BETAPACE) [Concomitant]
  7. ALBUTEROL (PROAIR HFA) [Concomitant]
  8. AMPYRA [Suspect]
     Active Substance: DALFAMPRIDINE
     Indication: MULTIPLE SCLEROSIS
     Route: 048
     Dates: start: 201007
  9. GLATIRAMER (COPAXONE) [Concomitant]
  10. SUBQ SYRINGE [Concomitant]
  11. FLOMAX [Concomitant]
     Active Substance: TAMSULOSIN HYDROCHLORIDE
  12. PARAXETINE (PAXIL) [Concomitant]
  13. BECLOMETHASONE DIPROPIONATE (OVAR0 [Concomitant]
  14. CODEINE-GUAIFENESIN (CHERATUSSIN AC) [Concomitant]
  15. TRAZODONE (DESYREL) [Concomitant]
  16. INHALATIONAL SPACER (AEROCHAMBER PLUS FLOW-VU) [Concomitant]
  17. PANTOPRAZOLE (PROTONIX) [Concomitant]

REACTIONS (1)
  - Laboratory test abnormal [None]

NARRATIVE: CASE EVENT DATE: 20150115
